FAERS Safety Report 7375540-6 (Version None)
Quarter: 2011Q1

REPORT INFORMATION
  Report Type: 
  Country: None (occurrence: None)
  Receive Date: 20110325
  Receipt Date: 20110323
  Transmission Date: 20110831
  Serious: Yes (Other)
  Sender: FDA-Public Use
  Company Number: US-BAYER-2011-026066

PATIENT
  Sex: Female

DRUGS (3)
  1. YASMIN [Suspect]
     Dosage: UNK
     Route: 048
     Dates: start: 20041215, end: 20060131
  2. YAZ [Suspect]
     Dosage: UNK
     Route: 048
     Dates: start: 20071017, end: 20091021
  3. YASMIN [Suspect]
     Dosage: UNK
     Dates: start: 20070519, end: 20071016

REACTIONS (1)
  - CHOLECYSTECTOMY [None]
